FAERS Safety Report 5311041-4 (Version None)
Quarter: 2007Q2

REPORT INFORMATION
  Report Type: 
  Country: None (occurrence: None)
  Receive Date: 20070430
  Receipt Date: 20070418
  Transmission Date: 20071010
  Serious: Yes (Disabling)
  Sender: FDA-Public Use
  Company Number: GB-JNJFOC-20070403529

PATIENT
  Age: 77 Year
  Sex: Male

DRUGS (11)
  1. OFLOXACIN [Suspect]
     Indication: DRUG USE FOR UNKNOWN INDICATION
     Route: 048
  2. ASPIRIN [Concomitant]
     Route: 065
  3. ATORVASTATIN CALCIUM [Concomitant]
     Route: 048
  4. BENDROFLUMETHAZIDE [Concomitant]
     Route: 048
  5. BENDROFLUMETHAZIDE [Concomitant]
     Route: 048
  6. BISOPRODOL FUMARATE [Concomitant]
     Route: 048
  7. DOXAZOSIN MESYLATE [Concomitant]
     Route: 048
  8. EZETIMIBE [Concomitant]
     Route: 048
  9. INSULIN [Concomitant]
     Route: 030
  10. LISINOPRIL [Concomitant]
     Route: 048
  11. NAPROXEN [Concomitant]
     Route: 048

REACTIONS (1)
  - MUSCLE SPASMS [None]
